FAERS Safety Report 6399227-1 (Version None)
Quarter: 2009Q4

REPORT INFORMATION
  Report Type: 
  Country: None (occurrence: None)
  Receive Date: 20091013
  Receipt Date: 20091008
  Transmission Date: 20100525
  Serious: Yes (Hospitalization, Disabling, Other)
  Sender: FDA-Public Use
  Company Number: FR-ABBOTT-08P-056-0461055-00

PATIENT
  Age: 58 Year
  Sex: Female
  Weight: 54 kg

DRUGS (6)
  1. HUMIRA [Suspect]
     Indication: RHEUMATOID ARTHRITIS
     Route: 058
     Dates: start: 20040601, end: 20080501
  2. METHOTREXATE [Concomitant]
     Indication: RHEUMATOID ARTHRITIS
     Route: 048
     Dates: start: 19750101, end: 20080601
  3. CLONAZEPAM [Concomitant]
     Indication: NEUROPATHY PERIPHERAL
     Dosage: FIVE DROPS DAILY
     Route: 048
     Dates: start: 20040101
  4. ISRADIPINE [Concomitant]
     Indication: HYPERTENSION
     Dosage: FIVE MILLIGRAMS DAILY
     Route: 048
     Dates: start: 20071001, end: 20080601
  5. URAPIDIL [Concomitant]
     Indication: HYPERTENSION
     Dosage: SIXTY MILLIGRAMS DAILY
     Route: 048
     Dates: start: 20071001
  6. ALENDRONATE MONOSODIE COLECALCIFEROL [Concomitant]
     Indication: OSTEOPOROSIS PROPHYLAXIS
     Route: 048

REACTIONS (6)
  - ANAEMIA [None]
  - ANTINEUTROPHIL CYTOPLASMIC ANTIBODY [None]
  - BLOOD CREATININE INCREASED [None]
  - EPISTAXIS [None]
  - GLOMERULONEPHRITIS [None]
  - VASCULITIS [None]
